FAERS Safety Report 10005469 (Version 2)
Quarter: 2014Q1

REPORT INFORMATION
  Report Type: Spontaneous
  Country: US (occurrence: US)
  Receive Date: 20140313
  Receipt Date: 20140325
  Transmission Date: 20141002
  Serious: Yes (Hospitalization)
  Sender: FDA-Public Use
  Company Number: US-BIOGENIDEC-2014BI021608

PATIENT
  Age: 70 Year
  Sex: Female

DRUGS (1)
  1. AVONEX [Suspect]
     Indication: MULTIPLE SCLEROSIS
     Route: 030
     Dates: start: 19990730

REACTIONS (5)
  - Musculoskeletal disorder [Recovered/Resolved]
  - Multiple sclerosis [Unknown]
  - Memory impairment [Unknown]
  - Fear [Unknown]
  - Fatigue [Unknown]
